FAERS Safety Report 10736181 (Version 3)
Quarter: 2015Q4

REPORT INFORMATION
  Report Type: Spontaneous
  Country: US (occurrence: US)
  Receive Date: 20150126
  Receipt Date: 20151029
  Transmission Date: 20160304
  Serious: Yes (Other)
  Sender: FDA-Public Use
  Company Number: US-UCBSA-2015001204

PATIENT
  Sex: Female

DRUGS (9)
  1. KEPPRA XR [Suspect]
     Active Substance: LEVETIRACETAM
     Indication: SEIZURE
     Dosage: 750 MG, 2X/DAY (BID) 750 MG 4TABS DAILY
     Route: 048
  2. VENLAFAXINE HCL [Concomitant]
     Active Substance: VENLAFAXINE HYDROCHLORIDE
     Indication: PRODUCT USED FOR UNKNOWN INDICATION
     Dosage: STRENGHT 75MG, 1 TAB BY MOUTH DAILY
  3. NORTRIPTYLINE HCL [Concomitant]
     Active Substance: NORTRIPTYLINE HYDROCHLORIDE
     Indication: PRODUCT USED FOR UNKNOWN INDICATION
     Dosage: 10MG CAPS , 1 TWICE DAILY
  4. DILANTIN [Concomitant]
     Active Substance: PHENYTOIN
     Indication: PRODUCT USED FOR UNKNOWN INDICATION
     Dosage: 100 MG CAPS TAKE 150MG IN AM AND 200MG AT HS
     Route: 048
  5. HYDROCHLOROTHIAZIDE. [Concomitant]
     Active Substance: HYDROCHLOROTHIAZIDE
     Indication: PRODUCT USED FOR UNKNOWN INDICATION
     Dosage: 25MG TABS TAKE ONE TAB DAILLY
     Route: 048
  6. VENTOLIN HFA [Concomitant]
     Active Substance: ALBUTEROL SULFATE
     Indication: PRODUCT USED FOR UNKNOWN INDICATION
     Dosage: 108 (90BASE) MCG/ACT AERS (ALBUTEROL SULFATE) 1 TO 2 PUFFS EVERY 4 HRS PRN SOB
  7. VITAMIN D3 [Concomitant]
     Active Substance: CHOLECALCIFEROL
     Indication: PRODUCT USED FOR UNKNOWN INDICATION
     Dosage: D3 2000 UNIT TABS 1 DAILY
     Route: 048
  8. OMEPRAZOLE. [Concomitant]
     Active Substance: OMEPRAZOLE
     Indication: PRODUCT USED FOR UNKNOWN INDICATION
     Dosage: 40MG CPDR ONE ORAL DOSE DAILLY
     Route: 048
  9. AMLODIPINE BESYLATE. [Concomitant]
     Active Substance: AMLODIPINE BESYLATE
     Indication: PRODUCT USED FOR UNKNOWN INDICATION
     Dosage: 5MG TABS STRENTGH, ONE TABS DAILY
     Route: 048

REACTIONS (18)
  - Pulmonary sarcoidosis [Not Recovered/Not Resolved]
  - Acrochordon [Not Recovered/Not Resolved]
  - Essential hypertension [Not Recovered/Not Resolved]
  - Dizziness [Not Recovered/Not Resolved]
  - Sleep apnoea syndrome [Not Recovered/Not Resolved]
  - Epilepsy [Not Recovered/Not Resolved]
  - Obesity [Not Recovered/Not Resolved]
  - Sinusitis [Not Recovered/Not Resolved]
  - Inappropriate schedule of drug administration [Unknown]
  - Tension headache [Not Recovered/Not Resolved]
  - Vitamin D deficiency [Not Recovered/Not Resolved]
  - Cervix disorder [Not Recovered/Not Resolved]
  - Back pain [Not Recovered/Not Resolved]
  - Seizure [Unknown]
  - Vision blurred [Not Recovered/Not Resolved]
  - Gastrooesophageal reflux disease [Not Recovered/Not Resolved]
  - Rheumatoid arthritis [Not Recovered/Not Resolved]
  - Depression [Not Recovered/Not Resolved]
